FAERS Safety Report 20290366 (Version 1)
Quarter: 2022Q1

REPORT INFORMATION
  Report Type: Spontaneous
  Country: US (occurrence: None)
  Receive Date: 20220103
  Receipt Date: 20220103
  Transmission Date: 20220423
  Serious: Yes (Other)
  Sender: FDA-Public Use
  Company Number: None

PATIENT
  Age: 78 Year
  Sex: Female

DRUGS (1)
  1. PRIVIGEN [Suspect]
     Active Substance: HUMAN IMMUNOGLOBULIN G
     Indication: Hypersensitivity
     Dosage: OTHER FREQUENCY : ONCE;?
     Route: 042
     Dates: start: 20211228, end: 20211228

REACTIONS (2)
  - Rash vesicular [None]
  - Pruritus [None]

NARRATIVE: CASE EVENT DATE: 20211228
